FAERS Safety Report 6814376-9 (Version None)
Quarter: 2010Q3

REPORT INFORMATION
  Report Type: 
  Country: None (occurrence: None)
  Receive Date: 20100702
  Receipt Date: 20100622
  Transmission Date: 20110219
  Serious: Yes (Death)
  Sender: FDA-Public Use
  Company Number: US-ELI_LILLY_AND_COMPANY-US201006006137

PATIENT
  Sex: Female
  Weight: 85.261 kg

DRUGS (23)
  1. PEMETREXED [Suspect]
     Indication: NON-SMALL CELL LUNG CANCER
     Dosage: 500 MG/M2, OTHER
     Route: 042
     Dates: start: 20100511, end: 20100601
  2. CARBOPLATIN [Suspect]
     Indication: NON-SMALL CELL LUNG CANCER
     Dosage: 6 D/F, OTHER
     Route: 042
     Dates: start: 20100511, end: 20100601
  3. BEVACIZUMAB [Suspect]
     Indication: NON-SMALL CELL LUNG CANCER
     Dosage: 15 MG/KG, OTHER
     Route: 042
     Dates: start: 20100511, end: 20100601
  4. ADVAIR DISKUS 100/50 [Concomitant]
     Dosage: 1 D/F, 2/D
     Route: 055
     Dates: start: 20100414
  5. AMBIEN [Concomitant]
     Indication: SLEEP DISORDER
     Dosage: 12.5 MG, AS NEEDED
     Route: 048
     Dates: start: 20100401
  6. CELEXA [Concomitant]
     Indication: DEPRESSION
     Dosage: 20 MG, DAILY (1/D)
     Route: 048
     Dates: start: 20100201
  7. CIPRO [Concomitant]
     Indication: PYREXIA
     Dosage: 500 MG, 2/D
     Route: 048
     Dates: start: 20100614
  8. CLINDAMYCIN [Concomitant]
     Indication: LUNG INFILTRATION
     Dosage: 600 MG, EVERY 8 HRS
     Dates: start: 20100602, end: 20100612
  9. COMPAZINE [Concomitant]
     Indication: NAUSEA
     Dosage: 10 MG, AS NEEDED
     Route: 048
     Dates: start: 20100506
  10. DUONEB [Concomitant]
     Dosage: 1 D/F, UNK
     Route: 055
  11. FOLIC ACID [Concomitant]
     Dosage: 0.4 MG, DAILY (1/D)
     Route: 048
  12. LEVOXYL [Concomitant]
     Dosage: 100 UG, DAILY (1/D)
     Route: 048
  13. LYRICA [Concomitant]
     Dosage: 50 MG, 3/D
     Route: 048
  14. MAGNESIUM OXIDE [Concomitant]
     Dosage: 800 MG, DAILY (1/D)
     Route: 048
  15. METOPROLOL TARTRATE [Concomitant]
     Indication: HYPERTENSION
     Dosage: 50 MG, 2/D
     Route: 048
     Dates: start: 20080101, end: 20100517
  16. NASONEX [Concomitant]
     Route: 055
  17. NEXIUM [Concomitant]
     Dosage: 40 MG, DAILY (1/D)
     Route: 048
  18. OPTIVAR [Concomitant]
     Route: 047
  19. SIMVASTATIN [Concomitant]
     Dosage: 40 MG, DAILY (1/D)
     Route: 048
  20. TRAMADOL HCL [Concomitant]
     Dosage: 50 MG, EVERY 4 HRS
     Route: 048
  21. TRAZODONE HYDROCHLORIDE [Concomitant]
     Dosage: 50 MG, DAILY (1/D)
     Route: 048
  22. ZYRTEC [Concomitant]
     Dosage: 5 MG, DAILY (1/D)
     Route: 048
  23. VITAMIN B-12 [Concomitant]
     Dates: start: 20100506

REACTIONS (1)
  - HAEMORRHAGE [None]
